FAERS Safety Report 15831556 (Version 1)
Quarter: 2019Q1

REPORT INFORMATION
  Report Type: Spontaneous
  Country: US (occurrence: US)
  Receive Date: 20190116
  Receipt Date: 20190116
  Transmission Date: 20190417
  Serious: Yes (Other)
  Sender: FDA-Public Use
  Company Number: US-BIOGEN-2019BI00683056

PATIENT
  Sex: Female

DRUGS (1)
  1. AVONEX [Suspect]
     Active Substance: INTERFERON BETA-1A
     Indication: MULTIPLE SCLEROSIS
     Route: 065
     Dates: start: 20100320

REACTIONS (6)
  - Suicidal ideation [Unknown]
  - Hypertension [Unknown]
  - Injection site pain [Unknown]
  - Depression [Unknown]
  - Seizure [Unknown]
  - Multiple sclerosis relapse [Unknown]
